FAERS Safety Report 6580189-9 (Version None)
Quarter: 2010Q1

REPORT INFORMATION
  Report Type: 
  Country: None (occurrence: None)
  Receive Date: 20100203
  Receipt Date: 20100121
  Transmission Date: 20100710
  Serious: Yes (Other)
  Sender: FDA-Public Use
  Company Number: 1000011560

PATIENT
  Age: 40 Year
  Sex: Male

DRUGS (1)
  1. ESCITALOPRAM [Suspect]
     Dosage: 10 MG (10 MG,1 IN 1 D),ORAL
     Route: 048
     Dates: end: 20090101

REACTIONS (3)
  - CORNEAL OEDEMA [None]
  - GLAUCOMA [None]
  - OCULAR HYPERAEMIA [None]
